FAERS Safety Report 4959438-6 (Version None)
Quarter: 2006Q1

REPORT INFORMATION
  Report Type: 
  Country: None (occurrence: None)
  Receive Date: 20060331
  Receipt Date: 20051004
  Transmission Date: 20060701
  Serious: Yes (Disabling)
  Sender: FDA-Public Use
  Company Number: US-MERCK-0510USA03583

PATIENT
  Age: 62 Year
  Sex: Male
  Weight: 95 kg

DRUGS (3)
  1. VIOXX [Suspect]
     Indication: OSTEOARTHRITIS
     Route: 048
     Dates: start: 20011001, end: 20040901
  2. VIOXX [Suspect]
     Indication: GOUT
     Route: 048
     Dates: start: 20011001, end: 20040901
  3. TYLENOL (CAPLET) [Concomitant]
     Route: 065

REACTIONS (3)
  - HYPOAESTHESIA [None]
  - ISCHAEMIC STROKE [None]
  - NEUROPATHY PERIPHERAL [None]
